FAERS Safety Report 26037132 (Version 1)
Quarter: 2025Q4

REPORT INFORMATION
  Report Type: Spontaneous
  Country: BR (occurrence: BR)
  Receive Date: 20251112
  Receipt Date: 20251112
  Transmission Date: 20260118
  Serious: Yes (Hospitalization, Other)
  Sender: ELI LILLY AND COMPANY
  Company Number: BR-ELI_LILLY_AND_COMPANY-BR202511003277

PATIENT
  Sex: Female

DRUGS (7)
  1. MOUNJARO [Suspect]
     Active Substance: TIRZEPATIDE
     Indication: Product used for unknown indication
     Dosage: 2.5 MG, UNKNOWN
     Route: 065
  2. MOUNJARO [Suspect]
     Active Substance: TIRZEPATIDE
     Indication: Product used for unknown indication
     Dosage: 2.5 MG, UNKNOWN
     Route: 065
  3. MOUNJARO [Suspect]
     Active Substance: TIRZEPATIDE
     Indication: Product used for unknown indication
     Dosage: 2.5 MG, UNKNOWN
     Route: 065
  4. MOUNJARO [Suspect]
     Active Substance: TIRZEPATIDE
     Indication: Product used for unknown indication
     Dosage: 2.5 MG, UNKNOWN
     Route: 065
  5. CYSTEX (METHENAMINE\SODIUM SALICYLATE) [Suspect]
     Active Substance: METHENAMINE\SODIUM SALICYLATE
     Indication: Chromaturia
     Dosage: UNK UNK, UNKNOWN
     Route: 065
  6. CYSTEX (METHENAMINE\SODIUM SALICYLATE) [Suspect]
     Active Substance: METHENAMINE\SODIUM SALICYLATE
     Indication: Blood urine present
  7. CYSTEX (METHENAMINE\SODIUM SALICYLATE) [Suspect]
     Active Substance: METHENAMINE\SODIUM SALICYLATE
     Indication: Urinary tract pain

REACTIONS (3)
  - Urinary tract infection [Recovering/Resolving]
  - Diarrhoea [Unknown]
  - Counterfeit product administered [Unknown]
